FAERS Safety Report 9492064 (Version 1)
Quarter: 2013Q3

REPORT INFORMATION
  Report Type: Spontaneous
  Country: IL (occurrence: None)
  Receive Date: 20130827
  Receipt Date: 20130827
  Transmission Date: 20140515
  Serious: Yes (Other)
  Sender: FDA-Public Use
  Company Number: IL-DEXPHARM-20130500

PATIENT
  Age: 55 Year
  Sex: Female

DRUGS (1)
  1. CHLORHEXIDINE [Suspect]

REACTIONS (2)
  - Chemical injury [None]
  - Burns third degree [None]
